FAERS Safety Report 9785688 (Version 3)
Quarter: 2014Q3

REPORT INFORMATION
  Report Type: Spontaneous
  Country: US (occurrence: US)
  Receive Date: 20131227
  Receipt Date: 20140814
  Transmission Date: 20150326
  Serious: Yes (Other)
  Sender: FDA-Public Use
  Company Number: US-BAYER-2013-155897

PATIENT
  Age: 34 Year
  Sex: Female
  Weight: 54 kg

DRUGS (3)
  1. MIRENA [Suspect]
     Active Substance: LEVONORGESTREL
     Indication: CONTRACEPTION
     Dosage: 20 MCG/24HR, CONT
     Route: 015
     Dates: start: 20091124, end: 20120202
  2. LORTAB [Concomitant]
     Active Substance: ACETAMINOPHEN\HYDROCODONE BITARTRATE
  3. CYTOTEC [Concomitant]
     Active Substance: MISOPROSTOL

REACTIONS (6)
  - Device difficult to use [None]
  - Injury [None]
  - Pain [None]
  - Uterine perforation [None]
  - Emotional distress [None]
  - Genital haemorrhage [None]

NARRATIVE: CASE EVENT DATE: 20111111
